FAERS Safety Report 10543794 (Version 1)
Quarter: 2014Q4

REPORT INFORMATION
  Report Type: Spontaneous
  Country: US (occurrence: US)
  Receive Date: 20141027
  Receipt Date: 20141027
  Transmission Date: 20150529
  Serious: Yes (Other)
  Sender: FDA-Public Use
  Company Number: US-MYLANLABS-2014M1007822

PATIENT

DRUGS (1)
  1. CHLORTHALIDONE TABLETS USP [Suspect]
     Active Substance: CHLORTHALIDONE
     Indication: BLOOD PRESSURE
     Dosage: 25 MG, 5XW
     Route: 048
     Dates: start: 201409

REACTIONS (2)
  - Renal impairment [Not Recovered/Not Resolved]
  - Renal impairment [None]

NARRATIVE: CASE EVENT DATE: 2014
